FAERS Safety Report 19592428 (Version 2)
Quarter: 2021Q3

REPORT INFORMATION
  Report Type: Spontaneous
  Country: US (occurrence: US)
  Receive Date: 20210722
  Receipt Date: 20210823
  Transmission Date: 20211014
  Serious: Yes (Hospitalization)
  Sender: FDA-Public Use
  Company Number: US-FARMAPROD-202107-1148

PATIENT
  Sex: Male

DRUGS (12)
  1. ERYTHROMYCIN. [Concomitant]
     Active Substance: ERYTHROMYCIN
  2. OFLOXACIN. [Concomitant]
     Active Substance: OFLOXACIN
  3. OXERVATE [Suspect]
     Active Substance: CENEGERMIN-BKBJ
     Indication: NEUROTROPHIC KERATOPATHY
     Route: 047
     Dates: start: 20210611
  4. CLINDAMYCIN HCL [Concomitant]
     Active Substance: CLINDAMYCIN HYDROCHLORIDE
  5. PREDNISOLONE/NEPAFENAC [Concomitant]
  6. CHLORTHALIDONE. [Concomitant]
     Active Substance: CHLORTHALIDONE
  7. ATORVASTATIN CALCIUM. [Concomitant]
     Active Substance: ATORVASTATIN CALCIUM
  8. OMEPRAZOLE. [Concomitant]
     Active Substance: OMEPRAZOLE
     Dosage: DELAYED RELEASE
  9. ATENOLOL. [Concomitant]
     Active Substance: ATENOLOL
  10. MULTIVITAMINS [Concomitant]
     Active Substance: VITAMINS
  11. DICLOFENAC [Concomitant]
     Active Substance: DICLOFENAC
  12. POLYMYXIN B SUL/TRIMETHOPRIM [Concomitant]

REACTIONS (3)
  - Renal failure [Recovered/Resolved]
  - Hypotension [Recovered/Resolved]
  - Staphylococcal infection [Recovered/Resolved]
